FAERS Safety Report 18323430 (Version 2)
Quarter: 2020Q4

REPORT INFORMATION
  Report Type: Report from Study
  Country: ES (occurrence: ES)
  Receive Date: 20200928
  Receipt Date: 20201019
  Transmission Date: 20210113
  Serious: Yes (Other)
  Sender: FDA-Public Use
  Company Number: ES-BEH-2020122821

PATIENT
  Age: 44 Year
  Sex: Male
  Weight: 78 kg

DRUGS (3)
  1. RIASTAP [Suspect]
     Active Substance: FIBRINOGEN HUMAN
     Indication: HEPATITIS VIRAL
  2. RIASTAP [Suspect]
     Active Substance: FIBRINOGEN HUMAN
     Indication: HEPATIC CIRRHOSIS
  3. RIASTAP [Suspect]
     Active Substance: FIBRINOGEN HUMAN
     Indication: LIVER TRANSPLANT
     Dosage: 2 GRAM, SINGLE
     Route: 042
     Dates: start: 20190814, end: 20190814

REACTIONS (3)
  - Circumstance or information capable of leading to medication error [Recovered/Resolved]
  - No adverse event [Unknown]
  - Product use in unapproved indication [Unknown]

NARRATIVE: CASE EVENT DATE: 20190814
